FAERS Safety Report 19911317 (Version 1)
Quarter: 2021Q4

REPORT INFORMATION
  Report Type: Spontaneous
  Country: US (occurrence: US)
  Receive Date: 20211003
  Receipt Date: 20211003
  Transmission Date: 20220303
  Serious: Yes (Life-Threatening, Hospitalization)
  Sender: FDA-Public Use
  Company Number: None

PATIENT
  Age: 70 Year
  Sex: Male
  Weight: 87.75 kg

DRUGS (6)
  1. REGEN-COV [Suspect]
     Active Substance: CASIRIVIMAB\IMDEVIMAB
     Indication: SARS-CoV-2 test positive
     Route: 042
  2. Hydroxychloroquiine [Concomitant]
     Dates: start: 20210925, end: 20210930
  3. DEXAMETHASONE [Concomitant]
     Active Substance: DEXAMETHASONE
     Dates: start: 20210925, end: 20211001
  4. albuterol inh solution [Concomitant]
     Dates: start: 20210925, end: 20211001
  5. Doxycycline 100mg bid [Concomitant]
     Dates: start: 20210925, end: 20211001
  6. Budesonide inh solution [Concomitant]
     Dates: start: 20210925, end: 20211001

REACTIONS (8)
  - Infusion related reaction [None]
  - Chills [None]
  - Pain [None]
  - Headache [None]
  - Dyspnoea [None]
  - Pyrexia [None]
  - Pneumonia [None]
  - Oxygen saturation decreased [None]

NARRATIVE: CASE EVENT DATE: 20210927
